FAERS Safety Report 5377857-3 (Version None)
Quarter: 2007Q3

REPORT INFORMATION
  Report Type: 
  Country: None (occurrence: None)
  Receive Date: 20070703
  Receipt Date: 20070623
  Transmission Date: 20080115
  Serious: Yes (Other)
  Sender: FDA-Public Use
  Company Number: DE-PFIZER INC-2007053902

PATIENT
  Sex: Male

DRUGS (3)
  1. ATORVASTATIN CALCIUM [Suspect]
     Indication: HYPERCHOLESTEROLAEMIA
     Dosage: DAILY DOSE:20MG
     Route: 048
  2. SIFROL [Interacting]
     Indication: PARKINSON'S DISEASE
     Route: 048
  3. GODAMED [Concomitant]
     Route: 048

REACTIONS (5)
  - DRUG INTERACTION [None]
  - DYSPHAGIA [None]
  - HORDEOLUM [None]
  - MYALGIA [None]
  - PARKINSON'S DISEASE [None]
